FAERS Safety Report 4799700-3 (Version None)
Quarter: 2005Q4

REPORT INFORMATION
  Report Type: 
  Country: None (occurrence: None)
  Receive Date: 20051011
  Receipt Date: 20050928
  Transmission Date: 20060501
  Serious: Yes (Hospitalization)
  Sender: FDA-Public Use
  Company Number: 2005134889

PATIENT
  Age: 39 Year
  Sex: Male
  Weight: 130 kg

DRUGS (1)
  1. ZELDOX (CAPSULES) (ZIPRASIDONE) [Suspect]
     Indication: SCHIZOPHRENIA
     Dosage: UNKNOWN,ORAL
     Route: 048
     Dates: start: 20041201

REACTIONS (1)
  - MYOCARDIAL INFARCTION [None]
